FAERS Safety Report 10488229 (Version 2)
Quarter: 2014Q4

REPORT INFORMATION
  Report Type: Spontaneous
  Country: US (occurrence: US)
  Receive Date: 20141002
  Receipt Date: 20141016
  Transmission Date: 20150528
  Serious: Yes (Death)
  Sender: FDA-Public Use
  Company Number: US-UNITED THERAPEUTICS-UNT-2014-008306

PATIENT
  Age: 51 Year
  Sex: Male
  Weight: 90.7 kg

DRUGS (2)
  1. TYVASO [Suspect]
     Active Substance: TREPROSTINIL
     Indication: COR PULMONALE CHRONIC
     Dosage: 18-54 ?G, QID
     Dates: start: 20110718, end: 20140918
  2. REVATIO [Concomitant]
     Active Substance: SILDENAFIL CITRATE
     Indication: PRODUCT USED FOR UNKNOWN INDICATION

REACTIONS (2)
  - Right ventricular failure [Fatal]
  - Arrhythmia [Fatal]

NARRATIVE: CASE EVENT DATE: 20140918
